FAERS Safety Report 20473899 (Version 1)
Quarter: 2022Q1

REPORT INFORMATION
  Report Type: Spontaneous
  Country: US (occurrence: None)
  Receive Date: 20220214
  Receipt Date: 20220214
  Transmission Date: 20220424
  Serious: Yes (Hospitalization)
  Sender: FDA-Public Use
  Company Number: None

PATIENT
  Age: 57 Year
  Sex: Male
  Weight: 86 kg

DRUGS (2)
  1. WARFARIN SODIUM [Suspect]
     Active Substance: WARFARIN SODIUM
     Indication: Cerebrovascular accident prophylaxis
     Dosage: 7.5 MG EVERY DAY PO?
     Route: 048
     Dates: start: 20201207
  2. WARFARIN SODIUM [Suspect]
     Active Substance: WARFARIN SODIUM
     Indication: Antiphospholipid syndrome

REACTIONS (3)
  - Abdominal pain [None]
  - International normalised ratio increased [None]
  - Haematoma [None]

NARRATIVE: CASE EVENT DATE: 20211027
